FAERS Safety Report 21858393 (Version 2)
Quarter: 2023Q2

REPORT INFORMATION
  Report Type: Spontaneous
  Country: SI (occurrence: SI)
  Receive Date: 20230113
  Receipt Date: 20230512
  Transmission Date: 20230721
  Serious: Yes (Other)
  Sender: FDA-Public Use
  Company Number: SI-002147023-NVSC2023SI006930

PATIENT
  Age: 66 Year
  Sex: Male

DRUGS (2)
  1. MAYZENT [Interacting]
     Active Substance: SIPONIMOD
     Indication: Multiple sclerosis
     Dosage: UNK
     Route: 065
     Dates: start: 202210
  2. CARBAMAZEPINE [Interacting]
     Active Substance: CARBAMAZEPINE
     Indication: Product used for unknown indication
     Dosage: UNK
     Route: 065

REACTIONS (3)
  - Prostatic disorder [Unknown]
  - Lymphocyte count decreased [Unknown]
  - Drug interaction [Unknown]
